FAERS Safety Report 23772799 (Version 1)
Quarter: 2024Q2

REPORT INFORMATION
  Report Type: Spontaneous
  Country: US (occurrence: None)
  Receive Date: 20240422
  Receipt Date: 20240422
  Transmission Date: 20240716
  Serious: Yes (Death)
  Sender: FDA-Public Use
  Company Number: None

PATIENT
  Age: 88 Year
  Sex: Male

DRUGS (1)
  1. FORTEO [Suspect]
     Active Substance: TERIPARATIDE
     Dosage: OTHER STRENGTH : 600/2.4 UG/ML;?FREQUENCY : DAILY;?

REACTIONS (1)
  - Death [None]

NARRATIVE: CASE EVENT DATE: 20240402
